FAERS Safety Report 9288543 (Version 1)
Quarter: 2013Q2

REPORT INFORMATION
  Report Type: Report from Study
  Country: US (occurrence: US)
  Receive Date: 20130514
  Receipt Date: 20130514
  Transmission Date: 20140414
  Serious: Yes (Other)
  Sender: FDA-Public Use
  Company Number: PHHY2013US047218

PATIENT
  Sex: Male
  Weight: 99.77 kg

DRUGS (17)
  1. GILENYA [Suspect]
     Indication: MULTIPLE SCLEROSIS
     Dosage: 0.5 MG, QD
     Route: 048
     Dates: start: 201211
  2. NAPROXEN SODIUM [Concomitant]
     Dosage: 220 MG, UNK
  3. PRILOSEC [Concomitant]
     Dosage: 20 MG, UNK
  4. VITAMIN D [Concomitant]
     Dosage: 400 U, UNK
  5. FISH OIL [Concomitant]
  6. MULTI-TABS [Concomitant]
  7. NUVIGIL [Concomitant]
     Dosage: 250 MG, UNK
  8. LOVASTATIN [Concomitant]
     Dosage: 10 MG, UNK
  9. VALSARTAN/HYDROCHLOROTHIAZIDE [Concomitant]
  10. CETIRIZINE [Concomitant]
     Dosage: 5 MG, UNK
  11. FLUTICASONE [Concomitant]
     Dosage: 50 UG, UNK
  12. SYMBICORT [Concomitant]
  13. PROAIR HFA [Concomitant]
  14. ACLIDINIUM [Concomitant]
  15. ACIPHEX [Concomitant]
     Dosage: 20 MG, UNK
  16. MODAFINIL [Concomitant]
     Dosage: 100 MG, UNK
  17. BABY ASPIRIN [Concomitant]
     Dosage: 81 MG, UNK

REACTIONS (4)
  - Asthma [Unknown]
  - Wheezing [Unknown]
  - Cough [Unknown]
  - Hypersensitivity [Unknown]
